FAERS Safety Report 9408679 (Version 1)
Quarter: 2013Q3

REPORT INFORMATION
  Report Type: Spontaneous
  Country: US (occurrence: None)
  Receive Date: 20130716
  Receipt Date: 20130716
  Transmission Date: 20140515
  Serious: Yes (Other)
  Sender: FDA-Public Use
  Company Number: 2013-2773

PATIENT
  Age: 47 Year
  Sex: Male
  Weight: 120 kg

DRUGS (4)
  1. SOMATULINE DEPOT INJECTION (90MG) (SOMATULINE SR) (LANREOTIDE) (LANREOTIDE ACETATE) [Suspect]
     Indication: ACROMEGALY
     Dosage: 90MG (90 MG, 1 IN 1 M)
     Dates: end: 2008
  2. TESTOSTERONE (TESTOSTERONE) [Concomitant]
  3. HYDROCORTISONE (HYDROCORTISONE) [Concomitant]
  4. LEVOTHYROXINE (LEVOTHYROXINE) [Concomitant]

REACTIONS (4)
  - Nephrolithiasis [None]
  - Hernia [None]
  - Cholelithiasis [None]
  - Type 2 diabetes mellitus [None]
